FAERS Safety Report 17810144 (Version 7)
Quarter: 2020Q4

REPORT INFORMATION
  Report Type: Report from Study
  Country: CO (occurrence: CO)
  Receive Date: 20200520
  Receipt Date: 20201123
  Transmission Date: 20210113
  Serious: Yes (Hospitalization, Other)
  Sender: FDA-Public Use
  Company Number: NVSC2020CO136683

PATIENT
  Sex: Male

DRUGS (2)
  1. TASIGNA [Suspect]
     Active Substance: NILOTINIB
     Indication: CHRONIC MYELOID LEUKAEMIA
     Dosage: 800 MG, QD
     Route: 048
  2. TASIGNA [Suspect]
     Active Substance: NILOTINIB
     Dosage: 400 MG, BID
     Route: 065

REACTIONS (20)
  - Pancreatitis [Unknown]
  - General physical health deterioration [Unknown]
  - Dysphagia [Unknown]
  - Abdominal distension [Unknown]
  - Insomnia [Unknown]
  - Underweight [Unknown]
  - Platelet count decreased [Unknown]
  - Splenitis [Unknown]
  - Pyrexia [Unknown]
  - Full blood count decreased [Unknown]
  - Gastritis [Unknown]
  - Weight increased [Unknown]
  - Pallor [Unknown]
  - Hepatitis [Unknown]
  - Splenomegaly [Unknown]
  - Thyroid disorder [Unknown]
  - Therapeutic response shortened [Unknown]
  - Drug ineffective [Unknown]
  - Inappropriate schedule of product administration [Unknown]
  - Decreased immune responsiveness [Unknown]
